FAERS Safety Report 9913540 (Version 1)
Quarter: 2014Q1

REPORT INFORMATION
  Report Type: Spontaneous
  Country: ZA (occurrence: ZA)
  Receive Date: 20140220
  Receipt Date: 20140220
  Transmission Date: 20141002
  Serious: Yes (Life-Threatening, Other)
  Sender: FDA-Public Use
  Company Number: ZA-PFIZER INC-2014043763

PATIENT
  Age: 34 Year
  Sex: Male

DRUGS (5)
  1. ETHAMBUTOL [Suspect]
     Indication: TUBERCULOSIS
     Dosage: UNK
  2. RIFAMPICIN [Suspect]
     Indication: TUBERCULOSIS
     Dosage: UNK
  3. ISONIAZID [Suspect]
     Indication: TUBERCULOSIS
     Dosage: UNK
  4. PYRAZINAMIDE [Suspect]
     Indication: TUBERCULOSIS
     Dosage: UNK
  5. CO-TRIMOXAZOLE [Concomitant]
     Indication: ANTIFUNGAL PROPHYLAXIS
     Dosage: UNK

REACTIONS (1)
  - Drug reaction with eosinophilia and systemic symptoms [Recovered/Resolved]
